FAERS Safety Report 9337019 (Version 3)
Quarter: 2013Q3

REPORT INFORMATION
  Report Type: Spontaneous
  Country: DE (occurrence: DE)
  Receive Date: 20130607
  Receipt Date: 20130923
  Transmission Date: 20140515
  Serious: Yes (Hospitalization)
  Sender: FDA-Public Use
  Company Number: DE-ROCHE-1233629

PATIENT
  Age: 72 Year
  Sex: Female

DRUGS (12)
  1. ROACTEMRA [Suspect]
     Indication: RHEUMATOID ARTHRITIS
     Route: 065
     Dates: start: 20120710
  2. HYDROCHLOROTHIAZIDE [Concomitant]
  3. SIMVASTATIN [Concomitant]
  4. LISINOPRIL [Concomitant]
  5. FOLIC ACID [Concomitant]
     Route: 065
  6. METHOTREXATE [Concomitant]
     Route: 065
  7. L-THYROXIN [Concomitant]
  8. PANTOPRAZOL [Concomitant]
     Route: 065
  9. ALENDRON [Concomitant]
     Route: 065
  10. DEKRISTOL [Concomitant]
     Route: 065
  11. INSIDON [Concomitant]
     Route: 065
  12. PREDNISOLON [Concomitant]
     Route: 065

REACTIONS (7)
  - Syncope [Recovered/Resolved]
  - Hydrocephalus [Unknown]
  - Facial paresis [Recovered/Resolved]
  - Carotid artery stenosis [Unknown]
  - Headache [Unknown]
  - Abdominal pain [Unknown]
  - Restlessness [Unknown]
